FAERS Safety Report 9583124 (Version 1)
Quarter: 2013Q4

REPORT INFORMATION
  Report Type: Spontaneous
  Country: US (occurrence: US)
  Receive Date: 20131002
  Receipt Date: 20131002
  Transmission Date: 20140711
  Serious: No
  Sender: FDA-Public Use
  Company Number: US-AMGEN-USASP2013045738

PATIENT
  Age: 64 Year
  Sex: Female

DRUGS (1)
  1. ENBREL [Suspect]
     Indication: PRODUCT USED FOR UNKNOWN INDICATION
     Dosage: 50 MG, QWK
     Route: 058
     Dates: start: 20130423

REACTIONS (7)
  - Swelling [Unknown]
  - Erythema [Unknown]
  - Arthralgia [Unknown]
  - Oedema peripheral [Unknown]
  - Joint swelling [Unknown]
  - Pain in extremity [Unknown]
  - Injection site erythema [Unknown]
